FAERS Safety Report 25603120 (Version 1)
Quarter: 2025Q3

REPORT INFORMATION
  Report Type: Spontaneous
  Country: IL (occurrence: IL)
  Receive Date: 20250724
  Receipt Date: 20250724
  Transmission Date: 20251021
  Serious: Yes (Other)
  Sender: AZURITY PHARMACEUTICALS
  Company Number: IL-AZURITY PHARMACEUTICALS, INC.-AZR202506-002130

PATIENT
  Sex: Male

DRUGS (1)
  1. TRIPTORELIN [Suspect]
     Active Substance: TRIPTORELIN
     Indication: Prostate cancer
     Route: 030
     Dates: start: 20240112

REACTIONS (2)
  - Erectile dysfunction [Not Recovered/Not Resolved]
  - Asthenia [Not Recovered/Not Resolved]
